FAERS Safety Report 12678242 (Version 1)
Quarter: 2016Q3

REPORT INFORMATION
  Report Type: Spontaneous
  Country: BR (occurrence: BR)
  Receive Date: 20160823
  Receipt Date: 20160823
  Transmission Date: 20161109
  Serious: Yes (Death, Hospitalization)
  Sender: FDA-Public Use
  Company Number: BR-MYLANLABS-2016M1035324

PATIENT

DRUGS (2)
  1. SIMVASTATIN. [Suspect]
     Active Substance: SIMVASTATIN
     Indication: DYSLIPIDAEMIA
     Route: 065
  2. ASPARAGINASE [Interacting]
     Active Substance: ASPARAGINASE
     Indication: ACUTE LYMPHOCYTIC LEUKAEMIA
     Dosage: TWICE A WEEK, SIX APPLICATIONS IN THE INDUCTION COURSE AND FOUR TIMES DURING EARLY INTENSIFICATION
     Route: 065

REACTIONS (3)
  - Drug interaction [Fatal]
  - Pancreatitis acute [Fatal]
  - Sepsis [Fatal]
